FAERS Safety Report 9783171 (Version 2)
Quarter: 2014Q1

REPORT INFORMATION
  Report Type: Spontaneous
  Country: PL (occurrence: None)
  Receive Date: 20131223
  Receipt Date: 20140122
  Transmission Date: 20141002
  Serious: Yes (Hospitalization, Other)
  Sender: FDA-Public Use
  Company Number: 2013AP010573

PATIENT
  Age: 33 Year
  Sex: Female

DRUGS (4)
  1. LEVETIRACETAM [Suspect]
     Indication: COMPLEX PARTIAL SEIZURES
  2. VALPROIC ACID (VALPROIC ACID) [Suspect]
     Indication: COMPLEX PARTIAL SEIZURES
  3. CARBAMAZEPINE (CARBAMAZEPINE) [Concomitant]
  4. LAMOTRIGENE (LAMOTRIGENE) [Concomitant]

REACTIONS (5)
  - Epilepsy [None]
  - Disorientation [None]
  - Neurosis [None]
  - Pregnancy [None]
  - Maternal exposure before pregnancy [None]
